FAERS Safety Report 5197185-9 (Version None)
Quarter: 2006Q4

REPORT INFORMATION
  Report Type: 
  Country: None (occurrence: None)
  Receive Date: 20061227
  Receipt Date: 20061211
  Transmission Date: 20070319
  Serious: Yes (Life-Threatening, Hospitalization, Other)
  Sender: FDA-Public Use
  Company Number: PAR_1158_2006

PATIENT
  Age: 67 Year
  Sex: Female

DRUGS (3)
  1. CITALOPRAM HYDROBROMIDE [Suspect]
     Dosage: 20 MG QDAY
  2. MIRTAZAPINE [Suspect]
     Dosage: 15 MG QHS
  3. LEVODOPA [Concomitant]

REACTIONS (13)
  - ABDOMINAL PAIN [None]
  - AGITATION [None]
  - BLOOD CHLORIDE DECREASED [None]
  - BLOOD OSMOLARITY DECREASED [None]
  - BRADYKINESIA [None]
  - HYPONATRAEMIA [None]
  - ILL-DEFINED DISORDER [None]
  - NAUSEA [None]
  - ORAL INTAKE REDUCED [None]
  - TREMOR [None]
  - URINE OSMOLARITY INCREASED [None]
  - URINE SODIUM INCREASED [None]
  - VOMITING [None]
